FAERS Safety Report 25506672 (Version 1)
Quarter: 2025Q3

REPORT INFORMATION
  Report Type: Spontaneous
  Country: EU (occurrence: EU)
  Receive Date: 20250702
  Receipt Date: 20250702
  Transmission Date: 20251021
  Serious: Yes (Hospitalization)
  Sender: MERCK SHARP & DOHME LLC
  Company Number: None

PATIENT
  Age: 68 Year
  Sex: Female
  Weight: 49 kg

DRUGS (1)
  1. SIVEXTRO [Suspect]
     Active Substance: TEDIZOLID PHOSPHATE
     Indication: Osteitis
     Route: 048
     Dates: start: 202310, end: 20250130

REACTIONS (3)
  - Maculopathy [Not Recovered/Not Resolved]
  - Hypoacusis [Not Recovered/Not Resolved]
  - Peripheral sensorimotor neuropathy [Not Recovered/Not Resolved]

NARRATIVE: CASE EVENT DATE: 20240101
